FAERS Safety Report 9857328 (Version 1)
Quarter: 2014Q1

REPORT INFORMATION
  Report Type: Report from Study
  Country: AU (occurrence: AU)
  Receive Date: 20140130
  Receipt Date: 20140130
  Transmission Date: 20141002
  Serious: Yes (Other)
  Sender: FDA-Public Use
  Company Number: AU-UCBSA-110491

PATIENT
  Age: 60 Year
  Sex: Male
  Weight: 137.7 kg

DRUGS (15)
  1. CERTOLIZUMAB PEGOL [Suspect]
     Indication: RHEUMATOID ARTHRITIS
     Dosage: 14 DOSES
     Route: 058
     Dates: start: 20090929, end: 20100415
  2. PREDNISOLONE [Concomitant]
     Indication: CROHN^S DISEASE
     Route: 048
     Dates: start: 20090714, end: 20091214
  3. PREDNISOLONE [Concomitant]
     Indication: CROHN^S DISEASE
     Route: 048
     Dates: start: 20091218, end: 20100127
  4. PREDNISOLONE [Concomitant]
     Indication: CROHN^S DISEASE
     Route: 048
     Dates: start: 20100128, end: 20100218
  5. PREDNISOLONE [Concomitant]
     Indication: CROHN^S DISEASE
     Route: 048
     Dates: start: 20100219, end: 20100316
  6. PREDNISOLONE [Concomitant]
     Indication: CROHN^S DISEASE
     Route: 048
     Dates: start: 20100219, end: 20100316
  7. PREDNISOLONE [Concomitant]
     Indication: CROHN^S DISEASE
     Route: 048
     Dates: start: 20100317, end: 20100415
  8. PARIET [Concomitant]
     Indication: HIATUS HERNIA
     Route: 048
     Dates: start: 20090401
  9. VITAMIN D/CALTRATE [Concomitant]
     Indication: CROHN^S DISEASE
     Route: 048
     Dates: start: 20090715
  10. BLACKMORE MULTIVITAMINS [Concomitant]
     Indication: VITAMIN SUPPLEMENTATION
     Dosage: 1 TAB DAILY
     Route: 048
     Dates: start: 200901
  11. FISH OIL [Concomitant]
     Indication: MINERAL SUPPLEMENTATION
     Route: 048
     Dates: start: 20090101, end: 20100210
  12. VENTOLIN [Concomitant]
     Indication: COUGH
     Dosage: 2 PUFFS
     Route: 055
     Dates: start: 20091012, end: 20100115
  13. SERETIDE [Concomitant]
     Indication: COUGH
     Dosage: 1 PUFF
     Route: 055
     Dates: start: 20091012, end: 20100115
  14. PANADOL [Concomitant]
     Indication: TOOTHACHE
     Route: 048
     Dates: start: 20091003
  15. KARVEA [Concomitant]
     Indication: HYPERTENSION
     Route: 048
     Dates: start: 20091211, end: 20100309

REACTIONS (1)
  - Basal cell carcinoma [Recovered/Resolved]
